FAERS Safety Report 7986025-8 (Version None)
Quarter: 2011Q4

REPORT INFORMATION
  Report Type: 
  Country: None (occurrence: None)
  Receive Date: 20111216
  Receipt Date: 20110107
  Transmission Date: 20120403
  Serious: No
  Sender: FDA-Public Use
  Company Number: US-BRISTOL-MYERS SQUIBB COMPANY-15464910

PATIENT
  Age: 67 Year
  Sex: Male
  Weight: 135 kg

DRUGS (3)
  1. LITHIUM [Concomitant]
  2. CELEXA [Concomitant]
  3. ABILIFY [Suspect]
     Indication: BIPOLAR I DISORDER
     Dosage: STOPPED 3 WEEKS AGO

REACTIONS (5)
  - ANXIETY [None]
  - RESPIRATORY RATE INCREASED [None]
  - NERVOUSNESS [None]
  - HYPERHIDROSIS [None]
  - DECREASED APPETITE [None]
